FAERS Safety Report 8138319-3 (Version None)
Quarter: 2012Q1

REPORT INFORMATION
  Report Type: 
  Country: None (occurrence: None)
  Receive Date: 20120215
  Receipt Date: 20120210
  Transmission Date: 20120608
  Serious: Yes (Death, Hospitalization)
  Sender: FDA-Public Use
  Company Number: JP-SANOFI-AVENTIS-2011SA076165

PATIENT
  Age: 59 Year
  Sex: Male
  Weight: 54.5 kg

DRUGS (21)
  1. CLOPIDOGREL BISULFATE [Suspect]
     Dosage: MAINTAINENCE DOSE
     Route: 065
     Dates: start: 20090916, end: 20100322
  2. CEFAZOLIN SODIUM [Concomitant]
     Route: 048
     Dates: start: 20090825
  3. NITROGLYCERIN [Concomitant]
     Dates: start: 20090920, end: 20090925
  4. CLOPIDOGREL BISULFATE [Suspect]
     Dosage: LOADING DOSE
     Route: 065
     Dates: start: 20090915, end: 20090915
  5. DEPAS [Concomitant]
     Route: 048
     Dates: start: 20090825, end: 20100625
  6. AMLODIPINE [Concomitant]
     Route: 048
     Dates: start: 20090827, end: 20091123
  7. LANSOPRAZOLE [Concomitant]
     Route: 048
     Dates: start: 20110916
  8. ROHYPNOL [Concomitant]
     Route: 048
     Dates: start: 20090927
  9. ISOSORBIDE MONONITRATE [Concomitant]
     Route: 048
     Dates: start: 20090926
  10. ISOSORBIDE DINITRATE [Concomitant]
     Dates: start: 20090926, end: 20091002
  11. ADALAT CC [Concomitant]
     Route: 048
     Dates: start: 20091124
  12. ASPIRIN [Concomitant]
     Route: 048
     Dates: start: 20090916, end: 20110325
  13. IMIDAPRIL HYDROCHLORIDE [Concomitant]
     Route: 048
     Dates: start: 20090827, end: 20090925
  14. GLYCYRON [Concomitant]
     Route: 048
     Dates: start: 20090827
  15. MUCODYNE [Concomitant]
     Route: 048
     Dates: start: 20091006
  16. PRAVASTATIN SODIUM [Concomitant]
     Route: 048
     Dates: start: 20090915
  17. ZOLPIDEM [Concomitant]
     Route: 048
     Dates: start: 20090927
  18. HEPARIN [Concomitant]
     Dosage: DOSE:7500 UNIT(S)
     Route: 042
     Dates: start: 20090922, end: 20090924
  19. MAGNESIUM OXIDE [Concomitant]
     Route: 048
     Dates: start: 20090827, end: 20110406
  20. TENORMIN [Concomitant]
     Route: 048
     Dates: start: 20090827, end: 20090925
  21. HEPARIN [Concomitant]
     Dosage: DOSE:10000 UNIT(S)
     Route: 042
     Dates: start: 20090920, end: 20090921

REACTIONS (2)
  - HYPOPHARYNGEAL CANCER [None]
  - ANGINA PECTORIS [None]
